FAERS Safety Report 7489875-X (Version None)
Quarter: 2011Q2

REPORT INFORMATION
  Report Type: 
  Country: None (occurrence: None)
  Receive Date: 20110511
  Receipt Date: 20110426
  Transmission Date: 20111010
  Serious: Yes (Other)
  Sender: FDA-Public Use
  Company Number: FR_TT_11_00001

PATIENT
  Sex: Female

DRUGS (1)
  1. DEXRAZOXANE [Suspect]
     Indication: EXTRAVASATION
     Dosage: ONCE DAILY FOR 3 DAYS
     Dates: start: 20101201, end: 20101201

REACTIONS (2)
  - DRUG INEFFECTIVE [None]
  - NECROSIS [None]
